FAERS Safety Report 24576690 (Version 1)
Quarter: 2024Q4

REPORT INFORMATION
  Report Type: Spontaneous
  Country: US (occurrence: None)
  Receive Date: 20241103
  Receipt Date: 20241103
  Transmission Date: 20250115
  Serious: Yes (Disabling)
  Sender: Public
  Company Number: None

PATIENT
  Age: 45 Year
  Sex: Female
  Weight: 83.25 kg

DRUGS (21)
  1. BUPRENORPHINE\NALOXONE [Suspect]
     Active Substance: BUPRENORPHINE\NALOXONE
     Indication: Pain
     Dosage: OTHER QUANTITY : 1 TABLET(S);?FREQUENCY : 3 TIMES A DAY;?
     Route: 060
  2. SUBOXONE [Concomitant]
     Active Substance: BUPRENORPHINE HYDROCHLORIDE\NALOXONE HYDROCHLORIDE
  3. ENALAPRIL [Concomitant]
     Active Substance: ENALAPRIL
  4. SIMVASTATIN [Concomitant]
     Active Substance: SIMVASTATIN
  5. ACETAMINOPHEN [Concomitant]
     Active Substance: ACETAMINOPHEN
  6. DULOXETINE [Concomitant]
     Active Substance: DULOXETINE
  7. LEVOTHYROXINE [Concomitant]
     Active Substance: LEVOTHYROXINE
  8. ESTRADIOL + PROGESTERONE [Concomitant]
  9. PROPRANOLOL [Concomitant]
     Active Substance: PROPRANOLOL HYDROCHLORIDE
  10. BUPROPION [Concomitant]
     Active Substance: BUPROPION
  11. FAMOTIDINE [Concomitant]
     Active Substance: FAMOTIDINE
  12. MELOXICAM [Concomitant]
     Active Substance: MELOXICAM
  13. TRAZODONE [Concomitant]
     Active Substance: TRAZODONE HYDROCHLORIDE
  14. LINZESS [Concomitant]
     Active Substance: LINACLOTIDE
  15. ARMODAFINIL [Concomitant]
     Active Substance: ARMODAFINIL
  16. LORATADINE [Concomitant]
     Active Substance: LORATADINE
  17. POLYETHYLENE GLYCOL [Concomitant]
  18. elecytolytes [Concomitant]
  19. IRON [Concomitant]
     Active Substance: IRON
  20. VITAMINS [Concomitant]
     Active Substance: VITAMINS
  21. b-complex vitamins [Concomitant]

REACTIONS (2)
  - Dysphonia [None]
  - Speech disorder [None]

NARRATIVE: CASE EVENT DATE: 20241001
